FAERS Safety Report 18640356 (Version 4)
Quarter: 2022Q2

REPORT INFORMATION
  Report Type: Spontaneous
  Country: AU (occurrence: AU)
  Receive Date: 20201221
  Receipt Date: 20220507
  Transmission Date: 20220721
  Serious: Yes (Hospitalization)
  Sender: FDA-Public Use
  Company Number: AU-CELLTRION INC.-2020AU034146

PATIENT

DRUGS (14)
  1. INFLECTRA [Suspect]
     Active Substance: INFLIXIMAB-DYYB
     Indication: Crohn^s disease
     Dosage: 10 MG/KG, 4 WEEKLY
  2. INFLECTRA [Suspect]
     Active Substance: INFLIXIMAB-DYYB
     Dosage: 10 MG/KG EVERY 4 WEEKS FOR 24 MONTHS
  3. TACROLIMUS [Concomitant]
     Active Substance: TACROLIMUS
     Dosage: UNK
     Route: 061
  4. ALBUMIN HUMAN [Concomitant]
     Active Substance: ALBUMIN HUMAN
     Dosage: UNK
     Route: 042
  5. PIMECROLIMUS [Concomitant]
     Active Substance: PIMECROLIMUS
     Indication: Perineal erythema
     Dosage: UNK
     Route: 061
  6. PIMECROLIMUS [Concomitant]
     Active Substance: PIMECROLIMUS
     Indication: Genital swelling
  7. PIMECROLIMUS [Concomitant]
     Active Substance: PIMECROLIMUS
     Indication: Anal erythema
  8. PIMECROLIMUS [Concomitant]
     Active Substance: PIMECROLIMUS
     Indication: Anorectal swelling
  9. FLAGYL [Concomitant]
     Active Substance: METRONIDAZOLE\METRONIDAZOLE HYDROCHLORIDE
     Dosage: UNK
  10. FOLATE SODIUM [Concomitant]
     Active Substance: FOLATE SODIUM
     Indication: Malabsorption
     Dosage: HIGH DOSE
  11. VIT D [VITAMIN D NOS] [Concomitant]
     Dosage: UNK
  12. ZINC [Concomitant]
     Active Substance: ZINC
     Dosage: UNK
  13. VITAMIN C [Concomitant]
     Active Substance: ASCORBIC ACID
     Dosage: UNK
  14. HYDRALYTE [POTASSIUM CHLORIDE;SODIUM CHLORIDE;SODIUM CITRATE] [Concomitant]
     Dosage: OCCASIONALLY

REACTIONS (3)
  - Condition aggravated [Unknown]
  - Off label use [Unknown]
  - Product use issue [Unknown]
